FAERS Safety Report 11790471 (Version 2)
Quarter: 2015Q4

REPORT INFORMATION
  Report Type: Report from Study
  Country: IE (occurrence: IE)
  Receive Date: 20151201
  Receipt Date: 20151214
  Transmission Date: 20160305
  Serious: Yes (Death, Other)
  Sender: FDA-Public Use
  Company Number: IE-MUNDIPHARMA DS AND PHARMACOVIGILANCE-GBR-2015-0032320

PATIENT
  Sex: Male

DRUGS (9)
  1. SPIRIVA [Concomitant]
     Active Substance: TIOTROPIUM BROMIDE MONOHYDRATE
  2. OXYCODONE HCL/NALOXONE HCL CRTAB 5/2.5MG [Suspect]
     Active Substance: NALOXONE HYDROCHLORIDE\OXYCODONE HYDROCHLORIDE
     Indication: RENAL COLIC
     Dosage: 5/2.5 MG, BID
     Route: 065
     Dates: start: 20140604, end: 20140630
  3. ASPIRIN. [Concomitant]
     Active Substance: ASPIRIN
  4. CLONFOLIC [Concomitant]
  5. OMNIC [Concomitant]
     Active Substance: TAMSULOSIN HYDROCHLORIDE
  6. FLUTICASONE [Concomitant]
     Active Substance: FLUTICASONE\FLUTICASONE PROPIONATE
  7. COVERSYL                           /00790702/ [Concomitant]
     Active Substance: PERINDOPRIL
  8. ESOMEPRAZOLE [Concomitant]
     Active Substance: ESOMEPRAZOLE
  9. LIPITOR [Concomitant]
     Active Substance: ATORVASTATIN CALCIUM

REACTIONS (2)
  - Lung neoplasm malignant [Fatal]
  - Drug ineffective [Unknown]
